FAERS Safety Report 7450296-7 (Version None)
Quarter: 2011Q2

REPORT INFORMATION
  Report Type: 
  Country: None (occurrence: None)
  Receive Date: 20110502
  Receipt Date: 20101214
  Transmission Date: 20111010
  Serious: Yes (Hospitalization, Other)
  Sender: FDA-Public Use
  Company Number: US-BAYER-201021278NA

PATIENT
  Age: 33 Year
  Sex: Female
  Weight: 100 kg

DRUGS (6)
  1. YASMIN [Suspect]
     Indication: MENSTRUATION IRREGULAR
     Dosage: ONE TABLET WAS TAKEN DAILY
     Route: 048
     Dates: start: 20070101, end: 20080415
  2. OMACOR [Concomitant]
     Indication: HYPERLIPIDAEMIA
  3. YASMIN [Suspect]
     Indication: CONTRACEPTION
  4. ADVIL LIQUI-GELS [Concomitant]
  5. HUMALOG [Concomitant]
  6. LANTUS [Concomitant]

REACTIONS (9)
  - PAIN IN EXTREMITY [None]
  - PERIPHERAL ISCHAEMIA [None]
  - PERIPHERAL ARTERIAL OCCLUSIVE DISEASE [None]
  - MUSCLE SPASMS [None]
  - GANGRENE [None]
  - PERIPHERAL EMBOLISM [None]
  - SKIN DISCOLOURATION [None]
  - INTERMITTENT CLAUDICATION [None]
  - ARTERIAL THROMBOSIS LIMB [None]
